FAERS Safety Report 5564695-1 (Version None)
Quarter: 2007Q4

REPORT INFORMATION
  Report Type: 
  Country: None (occurrence: None)
  Receive Date: 20071214
  Receipt Date: 20071214
  Transmission Date: 20080405
  Serious: Yes (Hospitalization)
  Sender: FDA-Public Use
  Company Number: None

PATIENT
  Sex: Female
  Weight: 94.5 kg

DRUGS (1)
  1. TEMOZOLOMIDE [Suspect]
     Dosage: 4200 MG

REACTIONS (4)
  - ASTHENIA [None]
  - CONVULSION [None]
  - DYSARTHRIA [None]
  - FACIAL PALSY [None]
